FAERS Safety Report 16443671 (Version 2)
Quarter: 2019Q3

REPORT INFORMATION
  Report Type: Report from Study
  Country: CZ (occurrence: CZ)
  Receive Date: 20190618
  Receipt Date: 20190716
  Transmission Date: 20191004
  Serious: Yes (Other)
  Sender: FDA-Public Use
  Company Number: CZ-ROCHE-2338689

PATIENT
  Age: 49 Year
  Sex: Female

DRUGS (6)
  1. DEGAN [Concomitant]
     Active Substance: METOCLOPRAMIDE HYDROCHLORIDE
  2. LONQUEX [Concomitant]
     Active Substance: LIPEGFILGRASTIM
  3. CARBOPLATIN. [Suspect]
     Active Substance: CARBOPLATIN
     Indication: OVARIAN CANCER
     Dosage: CARBOPLATIN AT A DOSE OF AREA UNDER CURVE (AUC) 4, DAY 1?DATE OF LAST DOSE PRIOR TO EVENT ONSET: 24/
     Route: 042
     Dates: start: 20181003, end: 20181024
  4. GEMCITABINE. [Suspect]
     Active Substance: GEMCITABINE
     Indication: OVARIAN CANCER
     Dosage: DATE OF LAST DOSE PRIOR TO EVENT ONSET: 31/OCT/2018
     Route: 042
     Dates: start: 20181003, end: 20181031
  5. BLINDED ATEZOLIZUMAB [Suspect]
     Active Substance: ATEZOLIZUMAB
     Indication: OVARIAN CANCER
     Dosage: DATE OF LAST DOSE PRIOR TO EVENT ONSET: 24/OCT/2018
     Route: 042
     Dates: start: 20181003, end: 20181024
  6. BEVACIZUMAB. [Suspect]
     Active Substance: BEVACIZUMAB
     Indication: OVARIAN CANCER
     Route: 042
     Dates: start: 20181003, end: 20181023

REACTIONS (1)
  - Drug-induced liver injury [Not Recovered/Not Resolved]

NARRATIVE: CASE EVENT DATE: 20181107
